FAERS Safety Report 24708586 (Version 3)
Quarter: 2025Q4

REPORT INFORMATION
  Report Type: Report from Study
  Country: CA (occurrence: CA)
  Receive Date: 20241207
  Receipt Date: 20251228
  Transmission Date: 20260119
  Serious: Yes (Other)
  Sender: DR REDDYS
  Company Number: None

PATIENT
  Age: 68 Year
  Sex: Female

DRUGS (2)
  1. ZOLEDRONIC ACID [Suspect]
     Active Substance: ZOLEDRONIC ACID
     Indication: Osteoporosis
     Dosage: 5MG/100ML ONCE YEARLY
     Route: 065
     Dates: start: 20221019
  2. ZOLEDRONIC ACID [Suspect]
     Active Substance: ZOLEDRONIC ACID
     Dosage: 5MG/100ML ONCE YEARLY
     Route: 065
     Dates: start: 20231020

REACTIONS (5)
  - Bone disorder [Unknown]
  - Treatment delayed [Unknown]
  - Gait disturbance [Unknown]
  - Intervertebral disc injury [Unknown]
  - Compression fracture [Unknown]
